FAERS Safety Report 10030919 (Version 2)
Quarter: 2014Q1

REPORT INFORMATION
  Report Type: Spontaneous
  Country: US (occurrence: US)
  Receive Date: 20140323
  Receipt Date: 20140323
  Transmission Date: 20141002
  Serious: Yes (Disabling)
  Sender: FDA-Public Use
  Company Number: US-GE HEALTHCARE MEDICAL DIAGNOSTICS-OSCN-PR-0905S-0273

PATIENT
  Age: 48 Year
  Sex: Female

DRUGS (5)
  1. OMNISCAN [Suspect]
     Indication: MEMORY IMPAIRMENT
     Route: 042
     Dates: start: 20010507, end: 20010507
  2. OMNISCAN [Suspect]
     Indication: RENAL FAILURE ACUTE
     Route: 042
     Dates: start: 20050802, end: 20050802
  3. OMNISCAN [Suspect]
     Indication: GAIT DISTURBANCE
     Route: 042
     Dates: start: 20050912, end: 20050912
  4. OMNISCAN [Suspect]
     Indication: CONFUSIONAL STATE
     Route: 042
     Dates: start: 20060110, end: 20060110
  5. OMNISCAN [Suspect]
     Indication: TRANSIENT ISCHAEMIC ATTACK

REACTIONS (1)
  - Nephrogenic systemic fibrosis [Not Recovered/Not Resolved]
